FAERS Safety Report 23026140 (Version 3)
Quarter: 2023Q4

REPORT INFORMATION
  Report Type: Report from Study
  Country: US (occurrence: US)
  Receive Date: 20231004
  Receipt Date: 20231017
  Transmission Date: 20240110
  Serious: Yes (Other)
  Sender: FDA-Public Use
  Company Number: US-ABBVIE-5434051

PATIENT
  Sex: Female

DRUGS (5)
  1. QULIPTA [Suspect]
     Active Substance: ATOGEPANT
     Indication: Migraine
     Dosage: 8 PILLS OF QULIPTA 60 MG
     Route: 048
     Dates: start: 20230928, end: 20231005
  2. MIDODRINE [Concomitant]
     Active Substance: MIDODRINE
     Indication: Hypotension
     Dosage: TIME INTERVAL: 0.33333333 DAYS: BEEN ON THIS FOR ^YEARS^
     Route: 048
  3. BUSPIRONE [Concomitant]
     Active Substance: BUSPIRONE HYDROCHLORIDE
     Indication: Anxiety
     Dosage: BEEN ON THIS FOR ^YEARS^
     Route: 065
  4. SERTRALINE [Concomitant]
     Active Substance: SERTRALINE HYDROCHLORIDE
     Indication: Anxiety
     Dosage: BEEN ON THIS FOR ^YEARS^
     Route: 065
  5. AMITRIPTYLINE [Concomitant]
     Active Substance: AMITRIPTYLINE
     Indication: Migraine
     Dosage: BEEN ON THIS ^FOREVER
     Route: 065

REACTIONS (4)
  - Loss of consciousness [Recovering/Resolving]
  - Heart rate increased [Unknown]
  - Dizziness [Unknown]
  - Hypertension [Unknown]

NARRATIVE: CASE EVENT DATE: 20230101
